FAERS Safety Report 16439185 (Version 2)
Quarter: 2019Q3

REPORT INFORMATION
  Report Type: Report from Study
  Country: PK (occurrence: PK)
  Receive Date: 20190617
  Receipt Date: 20190903
  Transmission Date: 20191004
  Serious: Yes (Death, Other)
  Sender: FDA-Public Use
  Company Number: PHHY2019PK137113

PATIENT
  Age: 32 Year
  Sex: Female
  Weight: 48 kg

DRUGS (1)
  1. TASIGNA [Suspect]
     Active Substance: NILOTINIB
     Indication: CHRONIC MYELOID LEUKAEMIA
     Dosage: 2 DF, BID
     Route: 048
     Dates: start: 20181127

REACTIONS (4)
  - Death [Fatal]
  - Platelet count decreased [Unknown]
  - White blood cell count increased [Unknown]
  - Haemoglobin decreased [Unknown]

NARRATIVE: CASE EVENT DATE: 20190506
